FAERS Safety Report 6772515-2 (Version None)
Quarter: 2010Q2

REPORT INFORMATION
  Report Type: 
  Country: None (occurrence: None)
  Receive Date: 20100616
  Receipt Date: 20090914
  Transmission Date: 20101027
  Serious: No
  Sender: FDA-Public Use
  Company Number: US-ASTRAZENECA-2009SE12991

PATIENT
  Age: 7 Year
  Sex: Male

DRUGS (4)
  1. PULMICORT RESPULES [Suspect]
     Indication: ASTHMA
     Route: 055
     Dates: start: 20080101
  2. PREVACID [Concomitant]
  3. PROAIR HFA [Concomitant]
  4. XOPENEX [Concomitant]

REACTIONS (1)
  - NASOPHARYNGITIS [None]
